FAERS Safety Report 15089819 (Version 3)
Quarter: 2018Q3

REPORT INFORMATION
  Report Type: Report from Study
  Country: CN (occurrence: CN)
  Receive Date: 20180629
  Receipt Date: 20180829
  Transmission Date: 20181010
  Serious: Yes (Hospitalization)
  Sender: FDA-Public Use
  Company Number: CN-ROCHE-2145562

PATIENT
  Age: 66 Year
  Sex: Female
  Weight: 75 kg

DRUGS (27)
  1. CISPLATIN. [Suspect]
     Active Substance: CISPLATIN
     Indication: NON-SMALL CELL LUNG CANCER
     Dosage: MOST RECENT DOSE OF CISPLATIN 100 MG PRIOR TO EVENT ONSET WAS ON 11/MAY/2018
     Route: 042
     Dates: start: 20180308
  2. ATEZOLIZUMAB. [Suspect]
     Active Substance: ATEZOLIZUMAB
     Indication: NON-SMALL CELL LUNG CANCER
     Dosage: MOST RECENT DOSE OF ATEZOLIZUMAB PRIOR TO EVENT ONSET WAS ON 06/JUN/2018
     Route: 042
     Dates: start: 20180606
  3. DOCETAXEL. [Suspect]
     Active Substance: DOCETAXEL
     Indication: NON-SMALL CELL LUNG CANCER
     Dosage: MOST RECENT DOSE OF DOCETAXEL 100 MG PRIOR TO EVENT ONSET WAS ON 11/MAY/2018
     Route: 042
     Dates: start: 20180308
  4. SODIUM DEOXYRIBONUCLEOTIDE [Concomitant]
     Dosage: COMPENSATORY NUTRITION
     Route: 065
     Dates: start: 20180515, end: 20180524
  5. FILGRASTIM [Concomitant]
     Active Substance: FILGRASTIM
     Indication: LEUKOPENIA
     Route: 065
     Dates: start: 20180519, end: 20180524
  6. FILGRASTIM [Concomitant]
     Active Substance: FILGRASTIM
     Route: 065
     Dates: start: 20180705, end: 20180706
  7. SODIUM DEOXYRIBONUCLEOTIDE [Concomitant]
     Route: 065
     Dates: start: 20180622, end: 20180627
  8. OLANZAPINE. [Concomitant]
     Active Substance: OLANZAPINE
     Route: 065
     Dates: start: 20180512
  9. LENTINAN [Concomitant]
     Active Substance: LENTINAN
     Route: 065
     Dates: start: 20180622, end: 20180627
  10. GLUCOSE + SALINE [Concomitant]
     Route: 065
     Dates: start: 20180622, end: 20180627
  11. MULBERRY [Concomitant]
     Active Substance: BROUSSONETIA PAPYRIFERA POLLEN
     Indication: LEUKOPENIA
     Route: 065
     Dates: start: 20180625, end: 20180627
  12. GARDEN BURNET ROOT [Concomitant]
     Indication: GRANULOCYTOPENIA
  13. OMEPRAZOLE. [Concomitant]
     Active Substance: OMEPRAZOLE
     Dosage: PROTECT THE STOMACH
     Route: 065
     Dates: start: 20180516, end: 20180524
  14. METOCLOPRAMIDE. [Concomitant]
     Active Substance: METOCLOPRAMIDE
     Indication: VOMITING
     Route: 065
     Dates: start: 20180623, end: 20180623
  15. TREE PEONY BARK [Concomitant]
     Indication: THROMBOCYTOPENIA
     Route: 065
     Dates: start: 20180503
  16. GLOSSY PRIVET FRUIT [Concomitant]
     Indication: LEUKOPENIA
     Route: 065
     Dates: start: 20180625, end: 20180627
  17. TROPISETRON [Concomitant]
     Active Substance: TROPISETRON
     Indication: VOMITING
     Route: 065
     Dates: start: 20180516, end: 20180524
  18. FILGRASTIM [Concomitant]
     Active Substance: FILGRASTIM
     Indication: GRANULOCYTOPENIA
     Route: 065
     Dates: start: 20180622, end: 20180625
  19. PANTOPRAZOLE SODIUM. [Concomitant]
     Active Substance: PANTOPRAZOLE SODIUM
     Route: 065
     Dates: start: 20180622, end: 20180627
  20. ECLIPTA ALBA [Concomitant]
     Indication: LEUKOPENIA
     Route: 065
     Dates: start: 20180625, end: 20180627
  21. ASTRAGALUS [Concomitant]
     Indication: LEUKOPENIA
     Route: 065
     Dates: start: 20180625, end: 20180627
  22. GARDEN BURNET ROOT [Concomitant]
     Indication: LEUKOPENIA
     Route: 065
     Dates: start: 20180416
  23. LENTINAN [Concomitant]
     Active Substance: LENTINAN
     Indication: ADJUVANT THERAPY
     Route: 065
     Dates: start: 20180516, end: 20180524
  24. FILGRASTIM [Concomitant]
     Active Substance: FILGRASTIM
     Route: 065
     Dates: start: 20180606, end: 20180606
  25. METOCLOPRAMIDE. [Concomitant]
     Active Substance: METOCLOPRAMIDE
     Route: 065
     Dates: start: 20180627, end: 20180627
  26. FALLOPIA MULTIFLORA [Concomitant]
     Indication: LEUKOPENIA
     Route: 065
     Dates: start: 20180625, end: 20180627
  27. RECOMBINANT HUMAN INTERLEUKIN?11 [Concomitant]
     Indication: THROMBOCYTOPENIA
     Route: 065
     Dates: start: 20180622, end: 20180627

REACTIONS (1)
  - Platelet count decreased [Recovered/Resolved]

NARRATIVE: CASE EVENT DATE: 20180622
